FAERS Safety Report 9311790 (Version 2)
Quarter: 2013Q2

REPORT INFORMATION
  Report Type: Spontaneous
  Country: US (occurrence: US)
  Receive Date: 20130525
  Receipt Date: 20130528
  Transmission Date: 20140414
  Serious: Yes (Other)
  Sender: FDA-Public Use
  Company Number: US-RB-054283-13

PATIENT
  Sex: Female

DRUGS (1)
  1. MUCINEX D MAXIMUM STRENGTH [Suspect]
     Indication: SINUS DISORDER
     Dosage: 2 TABLETS EVERY DAY
     Route: 048
     Dates: start: 20130508

REACTIONS (2)
  - Epistaxis [Recovered/Resolved]
  - Nasal dryness [Recovered/Resolved]
